FAERS Safety Report 13966994 (Version 9)
Quarter: 2018Q2

REPORT INFORMATION
  Report Type: Report from Study
  Country: CA (occurrence: CA)
  Receive Date: 20170914
  Receipt Date: 20180412
  Transmission Date: 20180711
  Serious: Yes (Hospitalization, Other)
  Sender: FDA-Public Use
  Company Number: CA-BRISTOL-MYERS SQUIBB COMPANY-BMS-2016-062190

PATIENT
  Age: 84 Year
  Sex: Female

DRUGS (5)
  1. FLAGYL [Suspect]
     Active Substance: METRONIDAZOLE\METRONIDAZOLE HYDROCHLORIDE
     Indication: PRODUCT USED FOR UNKNOWN INDICATION
     Route: 065
  2. PREDNISONE. [Concomitant]
     Active Substance: PREDNISONE
     Indication: PRODUCT USED FOR UNKNOWN INDICATION
     Route: 065
  3. METHOTREXATE. [Concomitant]
     Active Substance: METHOTREXATE
     Indication: PRODUCT USED FOR UNKNOWN INDICATION
     Route: 065
  4. ABATACEPT [Suspect]
     Active Substance: ABATACEPT
     Indication: RHEUMATOID ARTHRITIS
     Route: 065
  5. ABATACEPT [Suspect]
     Active Substance: ABATACEPT
     Indication: POLYARTHRITIS
     Dosage: 500 MG, Q4WK
     Route: 042
     Dates: start: 20160628

REACTIONS (39)
  - Chest pain [Unknown]
  - Respiratory tract congestion [Recovering/Resolving]
  - Pain [Not Recovered/Not Resolved]
  - Insomnia [Unknown]
  - Headache [Unknown]
  - Tendonitis [Unknown]
  - Wound [Recovering/Resolving]
  - Asthenia [Not Recovered/Not Resolved]
  - Stenosis [Unknown]
  - Hiatus hernia [Unknown]
  - Muscular weakness [Unknown]
  - Sinusitis [Recovering/Resolving]
  - Drug ineffective [Unknown]
  - Hip surgery [Unknown]
  - Clostridium difficile infection [Not Recovered/Not Resolved]
  - Pruritus [Recovered/Resolved]
  - Dysuria [Recovered/Resolved]
  - Cystitis [Recovering/Resolving]
  - Pain in extremity [Not Recovered/Not Resolved]
  - Movement disorder [Unknown]
  - Dyspepsia [Not Recovered/Not Resolved]
  - Hypertension [Unknown]
  - Paraesthesia [Not Recovered/Not Resolved]
  - Oesophageal disorder [Unknown]
  - Fall [Unknown]
  - Oedema [Not Recovered/Not Resolved]
  - Weight decreased [Unknown]
  - Urinary tract infection [Not Recovered/Not Resolved]
  - Arthralgia [Recovering/Resolving]
  - Chest discomfort [Unknown]
  - Arthritis [Unknown]
  - Aphonia [Recovering/Resolving]
  - Laryngitis [Recovering/Resolving]
  - Joint stiffness [Unknown]
  - Vomiting [Not Recovered/Not Resolved]
  - Hip fracture [Not Recovered/Not Resolved]
  - Fatigue [Unknown]
  - Hypoaesthesia [Unknown]
  - Musculoskeletal stiffness [Not Recovered/Not Resolved]

NARRATIVE: CASE EVENT DATE: 20161212
